FAERS Safety Report 11452102 (Version 1)
Quarter: 2015Q3

REPORT INFORMATION
  Report Type: Spontaneous
  Country: US (occurrence: None)
  Receive Date: 20150902
  Receipt Date: 20150902
  Transmission Date: 20151125
  Serious: Yes (Hospitalization)
  Sender: FDA-Public Use
  Company Number: None

PATIENT
  Sex: Female
  Weight: 102.3 kg

DRUGS (11)
  1. MULTIVITAMIN [Concomitant]
     Active Substance: VITAMINS
  2. WELLBUTRIN [Concomitant]
     Active Substance: BUPROPION HYDROCHLORIDE
  3. NEXIUM [Concomitant]
     Active Substance: ESOMEPRAZOLE MAGNESIUM
  4. TRAMADOL. [Concomitant]
     Active Substance: TRAMADOL
  5. KRISTALOSE [Concomitant]
     Active Substance: LACTULOSE
  6. RIFAXIMIN [Concomitant]
     Active Substance: RIFAXIMIN
  7. LACTULOSE. [Concomitant]
     Active Substance: LACTULOSE
  8. PATADAY [Concomitant]
     Active Substance: OLOPATADINE HYDROCHLORIDE
  9. HARVONI [Suspect]
     Active Substance: LEDIPASVIR\SOFOSBUVIR
     Indication: HEPATITIS C
     Dosage: 90/400 MG
     Route: 048
     Dates: start: 20141124, end: 20150512
  10. GABAPENTIN. [Concomitant]
     Active Substance: GABAPENTIN
  11. VITAMIN C [Concomitant]
     Active Substance: ASCORBIC ACID

REACTIONS (5)
  - Vomiting [None]
  - Abdominal pain [None]
  - Nausea [None]
  - Haematemesis [None]
  - Abdominal pain upper [None]

NARRATIVE: CASE EVENT DATE: 20141229
